FAERS Safety Report 10222611 (Version 1)
Quarter: 2014Q2

REPORT INFORMATION
  Report Type: Spontaneous
  Country: DE (occurrence: DE)
  Receive Date: 20140606
  Receipt Date: 20140606
  Transmission Date: 20141212
  Serious: Yes (Congenital Anomaly)
  Sender: FDA-Public Use
  Company Number: DE-WATSON-2013-25091

PATIENT
  Sex: Male
  Weight: 3.4 kg

DRUGS (4)
  1. LAMOTRIGINE (UNKNOWN) [Suspect]
     Indication: EPILEPSY
     Route: 064
  2. ANTILEPSIN [Suspect]
     Indication: EPILEPSY
     Route: 064
  3. PARACETAMOL [Concomitant]
     Indication: TOOTHACHE
     Dosage: UNK UNK, UNKNOWN
     Route: 064
  4. FOLIO [Concomitant]
     Indication: PROPHYLAXIS OF NEURAL TUBE DEFECT
     Route: 064

REACTIONS (3)
  - Cleft lip and palate [Unknown]
  - Atrial septal defect [Unknown]
  - Patent ductus arteriosus [Unknown]
